FAERS Safety Report 10817139 (Version 1)
Quarter: 2015Q1

REPORT INFORMATION
  Report Type: Report from Study
  Country: US (occurrence: US)
  Receive Date: 20150218
  Receipt Date: 20150218
  Transmission Date: 20150721
  Serious: No
  Sender: FDA-Public Use
  Company Number: US-ABBVIE-14K-163-1287293-00

PATIENT
  Age: 53 Year
  Sex: Female

DRUGS (7)
  1. HUMIRA [Suspect]
     Active Substance: ADALIMUMAB
     Indication: CROHN^S DISEASE
     Dates: start: 20140517
  2. CLARINEX [Concomitant]
     Active Substance: DESLORATADINE
     Indication: HYPERSENSITIVITY
  3. ALVESCO [Concomitant]
     Active Substance: CICLESONIDE
     Indication: HYPERSENSITIVITY
     Dosage: 160 MCG 1 PUFF TWICE A DAY
  4. FLONASE [Concomitant]
     Active Substance: FLUTICASONE PROPIONATE
     Indication: HYPERSENSITIVITY
     Dosage: ONE SPRAY IN EACH NARE
  5. AZATHIOPRINE. [Concomitant]
     Active Substance: AZATHIOPRINE
     Indication: CROHN^S DISEASE
  6. ASACOL [Concomitant]
     Active Substance: MESALAMINE
     Indication: CROHN^S DISEASE
  7. CALCIUM + VITAMIN D [Concomitant]
     Active Substance: CALCIUM\VITAMIN D
     Indication: PRODUCT USED FOR UNKNOWN INDICATION

REACTIONS (11)
  - Gastrooesophageal reflux disease [Not Recovered/Not Resolved]
  - Eye irritation [Recovered/Resolved]
  - Chills [Recovered/Resolved]
  - Pyrexia [Recovered/Resolved]
  - Eye irritation [Recovered/Resolved]
  - Pyrexia [Recovered/Resolved]
  - Chills [Recovered/Resolved]
  - Hiatus hernia [Not Recovered/Not Resolved]
  - Fatigue [Not Recovered/Not Resolved]
  - Arthralgia [Not Recovered/Not Resolved]
  - Productive cough [Not Recovered/Not Resolved]

NARRATIVE: CASE EVENT DATE: 2014
